FAERS Safety Report 9318053 (Version 1)
Quarter: 2013Q2

REPORT INFORMATION
  Report Type: Spontaneous
  Country: IT (occurrence: None)
  Receive Date: 20130524
  Receipt Date: 20130524
  Transmission Date: 20140414
  Serious: Yes (Other)
  Sender: FDA-Public Use
  Company Number: 2013AP005339

PATIENT
  Age: 60 Year
  Sex: Female

DRUGS (2)
  1. LEVOFLOXACIN (LEVOFLOXACIN) [Suspect]
     Indication: PRODUCT USED FOR UNKNOWN INDICATION
     Dosage: DF ROUTE AND FREQUENCY 1DF, UKNOWN PO /QD
     Route: 048
     Dates: start: 20130315, end: 20130320
  2. ROCEFIN (CEFTRIAXONE SODIUM) [Concomitant]

REACTIONS (5)
  - Arthralgia [None]
  - Erythema [None]
  - Lip oedema [None]
  - Urticaria [None]
  - Paraesthesia [None]
